FAERS Safety Report 21529755 (Version 1)
Quarter: 2022Q4

REPORT INFORMATION
  Report Type: Spontaneous
  Country: EG (occurrence: None)
  Receive Date: 20221031
  Receipt Date: 20221031
  Transmission Date: 20230112
  Serious: Yes (Hospitalization, Other)
  Sender: FDA-Public Use
  Company Number: EG-MLMSERVICE-20171106-0952374-1

PATIENT
  Age: 43 Year
  Sex: Female

DRUGS (1)
  1. LEVOFLOXACIN [Suspect]
     Active Substance: LEVOFLOXACIN
     Indication: Ear infection
     Route: 048

REACTIONS (3)
  - Laryngospasm [Not Recovered/Not Resolved]
  - Complex regional pain syndrome [Recovering/Resolving]
  - Neurotoxicity [Not Recovered/Not Resolved]
